FAERS Safety Report 4351506-5 (Version None)
Quarter: 2004Q2

REPORT INFORMATION
  Report Type: 
  Country: None (occurrence: None)
  Receive Date: 20040428
  Receipt Date: 20040413
  Transmission Date: 20050107
  Serious: Yes (Death, Hospitalization)
  Sender: FDA-Public Use
  Company Number: USA040360697

PATIENT
  Age: 55 Year
  Sex: Male

DRUGS (9)
  1. FORTEO [Suspect]
     Indication: OSTEOPOROSIS
     Dosage: 20 UG/DAY
     Dates: start: 20030212
  2. REMERON [Concomitant]
  3. ATENOLOL [Concomitant]
  4. ZOLOFT [Concomitant]
  5. LIPITOR [Concomitant]
  6. PROCRIT (ERYTHROPOIETIN) [Concomitant]
  7. ZANTAC [Concomitant]
  8. PREDNISONE [Concomitant]
  9. PROGRAF [Concomitant]

REACTIONS (11)
  - FAILURE TO THRIVE [None]
  - FLUID OVERLOAD [None]
  - GASTROINTESTINAL HAEMORRHAGE [None]
  - HAEMODIALYSIS [None]
  - INFUSION SITE REACTION [None]
  - PNEUMONIA [None]
  - PNEUMOTHORAX [None]
  - RENAL FAILURE [None]
  - SEPSIS [None]
  - THROMBOCYTOPENIA [None]
  - WEIGHT DECREASED [None]
